FAERS Safety Report 7058935-X (Version None)
Quarter: 2010Q4

REPORT INFORMATION
  Report Type: 
  Country: None (occurrence: None)
  Receive Date: 20101024
  Receipt Date: 20101020
  Transmission Date: 20110411
  Serious: Yes (Death, Hospitalization)
  Sender: FDA-Public Use
  Company Number: IT-WYE-G06651710

PATIENT
  Sex: Male

DRUGS (7)
  1. TYGACIL [Suspect]
     Indication: INFECTION
     Route: 042
     Dates: start: 20100812, end: 20100909
  2. CARDIOASPIRIN [Concomitant]
     Dosage: 100 MG
     Route: 048
  3. PERMIXON [Concomitant]
     Dosage: 320 MG
     Route: 048
  4. ANTRA [Concomitant]
     Dosage: 20 MG
     Route: 048
  5. SEREVENT [Concomitant]
     Dosage: 2 DOSES
     Route: 055
  6. DILATREND [Concomitant]
     Dosage: 1.56 MG
     Route: 048
  7. SEROQUEL [Concomitant]
     Dosage: 37.5 MG
     Route: 048

REACTIONS (5)
  - BLOOD LACTATE DEHYDROGENASE INCREASED [None]
  - PANCREATIC NECROSIS [None]
  - PANCREATITIS ACUTE [None]
  - SEPSIS [None]
  - SHOCK [None]
